FAERS Safety Report 10175837 (Version 2)
Quarter: 2014Q2

REPORT INFORMATION
  Report Type: Spontaneous
  Country: CO (occurrence: CO)
  Receive Date: 20140516
  Receipt Date: 20140528
  Transmission Date: 20141212
  Serious: Yes (Death, Hospitalization, Other)
  Sender: FDA-Public Use
  Company Number: CO-SHIRE-CO201402196

PATIENT
  Age: 19 Year
  Sex: Male
  Weight: 20 kg

DRUGS (1)
  1. ELAPRASE [Suspect]
     Indication: MUCOPOLYSACCHARIDOSIS II
     Dosage: 9 MG, 1X/WEEK
     Route: 041
     Dates: start: 20131011, end: 20140502

REACTIONS (3)
  - Cardio-respiratory arrest [Fatal]
  - Intestinal obstruction [Unknown]
  - Generalised oedema [Not Recovered/Not Resolved]
